FAERS Safety Report 17205936 (Version 1)
Quarter: 2019Q4

REPORT INFORMATION
  Report Type: Spontaneous
  Country: CA (occurrence: CA)
  Receive Date: 20191227
  Receipt Date: 20191227
  Transmission Date: 20200122
  Serious: Yes (Other)
  Sender: FDA-Public Use
  Company Number: CA-TEVA-2019-CA-1157405

PATIENT
  Sex: Male

DRUGS (5)
  1. METHADOSE SUGAR-FREE [Suspect]
     Active Substance: METHADONE HYDROCHLORIDE
     Indication: DRUG ABUSE
     Route: 065
  2. DILAUDID [Suspect]
     Active Substance: HYDROMORPHONE HYDROCHLORIDE
     Indication: PROCEDURAL PAIN
     Route: 065
  3. COCAINE [Suspect]
     Active Substance: COCAINE
     Indication: DRUG ABUSE
     Route: 065
  4. MORPHINE [Suspect]
     Active Substance: MORPHINE
     Indication: DRUG ABUSE
     Route: 065
  5. OXYCODONE [Suspect]
     Active Substance: OXYCODONE
     Indication: DRUG ABUSE
     Route: 065

REACTIONS (4)
  - Drug dependence [Unknown]
  - Drug abuse [Unknown]
  - Substance abuse [Unknown]
  - Drug withdrawal syndrome [Unknown]
